FAERS Safety Report 18516419 (Version 4)
Quarter: 2021Q4

REPORT INFORMATION
  Report Type: Spontaneous
  Country: US (occurrence: US)
  Receive Date: 20201118
  Receipt Date: 20211123
  Transmission Date: 20220304
  Serious: No
  Sender: FDA-Public Use
  Company Number: US-PFIZER INC-2020447865

PATIENT
  Age: 21 Year
  Sex: Female
  Weight: 81.19 kg

DRUGS (1)
  1. DEPO-PROVERA [Suspect]
     Active Substance: MEDROXYPROGESTERONE ACETATE
     Indication: Contraception
     Dosage: 104 MG (EVERY 9-14 WEEKS)
     Route: 058

REACTIONS (7)
  - Incorrect dose administered [Unknown]
  - Device issue [Unknown]
  - Product packaging issue [Unknown]
  - Multiple use of single-use product [Unknown]
  - Off label use [Unknown]
  - Product dose omission issue [Unknown]
  - Product administered by wrong person [Unknown]
